FAERS Safety Report 20678703 (Version 1)
Quarter: 2022Q2

REPORT INFORMATION
  Report Type: Spontaneous
  Country: US (occurrence: US)
  Receive Date: 20220406
  Receipt Date: 20220406
  Transmission Date: 20220721
  Serious: Yes (Other)
  Sender: FDA-Public Use
  Company Number: US-PFIZER INC-202200482422

PATIENT
  Sex: Male

DRUGS (1)
  1. ROCURONIUM BROMIDE [Suspect]
     Active Substance: ROCURONIUM BROMIDE
     Dosage: 6000 MG
     Dates: start: 20220323

REACTIONS (2)
  - Overdose [Unknown]
  - Paralysis [Unknown]

NARRATIVE: CASE EVENT DATE: 20220301
